FAERS Safety Report 5315164-5 (Version None)
Quarter: 2007Q2

REPORT INFORMATION
  Report Type: 
  Country: None (occurrence: None)
  Receive Date: 20070427
  Receipt Date: 20070419
  Transmission Date: 20071010
  Serious: Yes (Hospitalization)
  Sender: FDA-Public Use
  Company Number: T07-JPN-00737-01

PATIENT
  Age: 69 Year
  Sex: Male
  Weight: 66.4 kg

DRUGS (4)
  1. MEMANTINE HCL [Suspect]
     Indication: DEMENTIA ALZHEIMER'S TYPE
     Dates: start: 20060812, end: 20070128
  2. FERROUS CITRATE [Concomitant]
  3. REBAMIPIDE [Concomitant]
  4. AMLODIPINE BESYLATE [Concomitant]

REACTIONS (9)
  - ABNORMAL BEHAVIOUR [None]
  - AGGRESSION [None]
  - AGITATION [None]
  - CONDITION AGGRAVATED [None]
  - LIBIDO INCREASED [None]
  - PARANOIA [None]
  - PERSECUTORY DELUSION [None]
  - PORIOMANIA [None]
  - RESTLESSNESS [None]
